FAERS Safety Report 4463521-1 (Version None)
Quarter: 2004Q3

REPORT INFORMATION
  Report Type: 
  Country: None (occurrence: None)
  Receive Date: 20040928
  Receipt Date: 20040922
  Transmission Date: 20050211
  Serious: Yes (Hospitalization, Other)
  Sender: FDA-Public Use
  Company Number: ITWYE993723AUG04

PATIENT
  Age: 39 Year
  Sex: Female

DRUGS (1)
  1. LOETTE (LEVONORGESTREL/ETHINYL ESTRADIOL, TABLET, 0) [Suspect]
     Indication: ORAL CONTRACEPTION
     Dosage: 1 TABLET 1X PER 1 DAY ORAL
     Route: 048
     Dates: start: 20030604, end: 20040725

REACTIONS (5)
  - DIPLOPIA [None]
  - DYSARTHRIA [None]
  - HEMIANOPIA [None]
  - PARAESTHESIA [None]
  - TRANSIENT ISCHAEMIC ATTACK [None]
